FAERS Safety Report 10967836 (Version 1)
Quarter: 2015Q1

REPORT INFORMATION
  Report Type: Spontaneous
  Country: US (occurrence: None)
  Receive Date: 20150226
  Receipt Date: 20150226
  Transmission Date: 20150721
  Serious: No
  Sender: FDA-Public Use
  Company Number: TPA2010A00931

PATIENT
  Age: 57 Year
  Sex: Male
  Weight: 185 kg

DRUGS (3)
  1. INDOCIN (INDOMETACIN) [Concomitant]
  2. COLCHICINE (COLCHICINE) [Concomitant]
     Active Substance: COLCHICINE
  3. ULORIC [Suspect]
     Active Substance: FEBUXOSTAT
     Indication: GOUT
     Route: 048
     Dates: start: 201001

REACTIONS (3)
  - Gout [None]
  - Flatulence [None]
  - Faeces hard [None]
